FAERS Safety Report 15885909 (Version 3)
Quarter: 2019Q3

REPORT INFORMATION
  Report Type: Report from Study
  Country: US (occurrence: US)
  Receive Date: 20190129
  Receipt Date: 20190801
  Transmission Date: 20191004
  Serious: Yes (Other)
  Sender: FDA-Public Use
  Company Number: US-SA-2019SA023216

PATIENT
  Age: 44 Year
  Sex: Female
  Weight: 52.15 kg

DRUGS (5)
  1. CLOBETASOL [Concomitant]
     Active Substance: CLOBETASOL
     Indication: ECZEMA
     Dosage: UNK UNK, PRN
     Route: 061
     Dates: start: 2007
  2. DUPILUMAB [Suspect]
     Active Substance: DUPILUMAB
     Indication: DERMATITIS ATOPIC
     Dosage: 600 MG, 1X
     Route: 058
     Dates: start: 20181211, end: 20181211
  3. DUPILUMAB [Suspect]
     Active Substance: DUPILUMAB
     Dosage: 300 MG, QOW
     Route: 058
     Dates: start: 20190112, end: 20190112
  4. ALLEGRA [Concomitant]
     Active Substance: FEXOFENADINE HYDROCHLORIDE
     Indication: HYPERSENSITIVITY
     Dosage: 1 DF, QD
     Route: 048
     Dates: start: 2007
  5. SYMBICORT [Concomitant]
     Active Substance: BUDESONIDE\FORMOTEROL FUMARATE DIHYDRATE
     Indication: ASTHMA
     Dosage: 2 DF, QD, PUFFS
     Route: 055
     Dates: start: 2013

REACTIONS (7)
  - Erythema nodosum [Unknown]
  - Arthralgia [Unknown]
  - Pneumonia [Unknown]
  - Asthma [Unknown]
  - Pain [Unknown]
  - Swelling [Unknown]
  - Rash papular [Unknown]

NARRATIVE: CASE EVENT DATE: 2019
